FAERS Safety Report 11625536 (Version 3)
Quarter: 2015Q4

REPORT INFORMATION
  Report Type: Spontaneous
  Country: US (occurrence: US)
  Receive Date: 20151013
  Receipt Date: 20151105
  Transmission Date: 20160304
  Serious: Yes (Other)
  Sender: FDA-Public Use
  Company Number: US-PFIZER INC-2015337451

PATIENT
  Age: 54 Year
  Sex: Female
  Weight: 104 kg

DRUGS (1)
  1. XELJANZ [Suspect]
     Active Substance: TOFACITINIB CITRATE
     Indication: RHEUMATOID ARTHRITIS
     Dosage: 5 MG, 2X/DAY
     Route: 048
     Dates: start: 201401

REACTIONS (3)
  - Staphylococcal infection [Recovered/Resolved]
  - Cellulitis [Not Recovered/Not Resolved]
  - Mycobacterial infection [Not Recovered/Not Resolved]

NARRATIVE: CASE EVENT DATE: 2014
